FAERS Safety Report 11278119 (Version 2)
Quarter: 2018Q1

REPORT INFORMATION
  Report Type: Report from Study
  Country: CA (occurrence: CA)
  Receive Date: 20150717
  Receipt Date: 20180323
  Transmission Date: 20180508
  Serious: Yes (Other)
  Sender: FDA-Public Use
  Company Number: CA-ROCHE-1608053

PATIENT
  Age: 23 Year
  Sex: Female

DRUGS (7)
  1. SULFASALAZINE. [Concomitant]
     Active Substance: SULFASALAZINE
     Route: 065
     Dates: start: 2016
  2. AERIUS (CANADA) [Concomitant]
     Route: 065
     Dates: start: 2005
  3. XOLAIR [Suspect]
     Active Substance: OMALIZUMAB
     Indication: CHRONIC SPONTANEOUS URTICARIA
     Dosage: VIAL
     Route: 058
     Dates: start: 20150119
  4. HYDROXYCHLOROQUINE [Concomitant]
     Active Substance: HYDROXYCHLOROQUINE
     Dosage: 01//2017 TO 08//2017
     Route: 065
  5. ZANTAC [Concomitant]
     Active Substance: RANITIDINE HYDROCHLORIDE
     Dosage: //2016 TO 08//2017
     Route: 065
     Dates: start: 2016
  6. HYDROXYZINE [Concomitant]
     Active Substance: HYDROXYZINE HYDROCHLORIDE
     Route: 065
     Dates: start: 2016
  7. REACTINE (CANADA) [Concomitant]
     Active Substance: CETIRIZINE HYDROCHLORIDE
     Route: 065
     Dates: start: 2012

REACTIONS (4)
  - Pruritus [Unknown]
  - Urticaria [Unknown]
  - Angioedema [Unknown]
  - Drug ineffective [Unknown]

NARRATIVE: CASE EVENT DATE: 201502
